FAERS Safety Report 9680564 (Version 2)
Quarter: 2013Q4

REPORT INFORMATION
  Report Type: Spontaneous
  Country: US (occurrence: US)
  Receive Date: 20131111
  Receipt Date: 20131122
  Transmission Date: 20140711
  Serious: No
  Sender: FDA-Public Use
  Company Number: US-PFIZER INC-2013316703

PATIENT
  Age: 51 Year
  Sex: Female

DRUGS (2)
  1. SUTENT [Suspect]
     Indication: NEUROENDOCRINE CARCINOMA
     Dosage: 25 MG, QDX 4 WKS, 2WKS OFF
     Route: 048
  2. SUTENT [Suspect]
     Dosage: 37.5 MG, CYCLIC (QD 4 WEEKS 2 WEEKS OFF)
     Route: 048
     Dates: start: 20130915

REACTIONS (2)
  - Stomatitis [Not Recovered/Not Resolved]
  - Dysgeusia [Not Recovered/Not Resolved]
